FAERS Safety Report 14323235 (Version 1)
Quarter: 2017Q4

REPORT INFORMATION
  Report Type: Spontaneous
  Country: CN (occurrence: CN)
  Receive Date: 20171226
  Receipt Date: 20171226
  Transmission Date: 20180321
  Serious: Yes (Hospitalization, Other)
  Sender: FDA-Public Use
  Company Number: CN-VISTAPHARM, INC.-VER201712-001419

PATIENT
  Age: 50 Year
  Sex: Male
  Weight: 75 kg

DRUGS (10)
  1. AMANTADINE. [Concomitant]
     Active Substance: AMANTADINE HYDROCHLORIDE
     Indication: TREMOR
  2. LAMOTRIGINE. [Suspect]
     Active Substance: LAMOTRIGINE
     Indication: BLEPHAROSPASM
  3. AMANTADINE. [Concomitant]
     Active Substance: AMANTADINE HYDROCHLORIDE
     Indication: ANXIETY
  4. VALPROIC ACID. [Suspect]
     Active Substance: VALPROIC ACID
  5. LAMOTRIGINE. [Suspect]
     Active Substance: LAMOTRIGINE
     Indication: MUSCLE TWITCHING
  6. FLUPENTIXOL [Concomitant]
     Active Substance: FLUPENTIXOL
     Indication: TREMOR
  7. VALPROIC ACID. [Suspect]
     Active Substance: VALPROIC ACID
     Indication: BLEPHAROSPASM
  8. VALPROIC ACID. [Suspect]
     Active Substance: VALPROIC ACID
     Indication: MUSCLE TWITCHING
  9. MELITRACEN [Concomitant]
     Active Substance: MELITRACEN
     Indication: TREMOR
  10. BENZHEXOL [Concomitant]
     Active Substance: TRIHEXYPHENIDYL
     Indication: TREMOR

REACTIONS (2)
  - Drug interaction [Unknown]
  - Tremor [Recovered/Resolved]
